FAERS Safety Report 4643765-6 (Version None)
Quarter: 2005Q2

REPORT INFORMATION
  Report Type: 
  Country: None (occurrence: None)
  Receive Date: 20050422
  Receipt Date: 20050422
  Transmission Date: 20051028
  Serious: Yes (Other)
  Sender: FDA-Public Use
  Company Number: None

PATIENT
  Age: 85 Year
  Sex: Male
  Weight: 77.7 kg

DRUGS (15)
  1. WARFARIN [Suspect]
  2. ALBUTEROL [Concomitant]
  3. IPRATROPIUM BROMIDE [Concomitant]
  4. DILTIAZEM [Concomitant]
  5. IPRATROPIUM BROMIDE [Concomitant]
  6. PROMETHAZINE [Concomitant]
  7. SUGARLESS (GUAIFENESIN/DM) COUGH SYRUP [Concomitant]
  8. WARFARIN SODIUM [Concomitant]
  9. GATIFLOXACIN [Concomitant]
  10. OMEPRAZOLE [Concomitant]
  11. LORAZEPAM [Concomitant]
  12. ACETAMINOPHEN [Concomitant]
  13. FUROSEMIDE [Concomitant]
  14. CEFTRIAXONE [Concomitant]
  15. CEFAZOLIN [Concomitant]

REACTIONS (1)
  - PETECHIAE [None]
